FAERS Safety Report 7909690-X (Version None)
Quarter: 2011Q4

REPORT INFORMATION
  Report Type: 
  Country: None (occurrence: None)
  Receive Date: 20111111
  Receipt Date: 20111026
  Transmission Date: 20120403
  Serious: Yes (Hospitalization)
  Sender: FDA-Public Use
  Company Number: IT-GLAXOSMITHKLINE-B0760311A

PATIENT
  Sex: Female

DRUGS (3)
  1. ALPRAZOLAM [Concomitant]
     Indication: DEPRESSION
  2. OXCARBAZEPINE [Suspect]
     Indication: INTENTIONAL OVERDOSE
     Dosage: 6G PER DAY
     Route: 048
     Dates: start: 20110903, end: 20110903
  3. PAROXETINE HYDROCHLORIDE [Suspect]
     Indication: INTENTIONAL OVERDOSE
     Dosage: 720MG PER DAY
     Route: 048
     Dates: start: 20110903, end: 20110903

REACTIONS (3)
  - SOMNOLENCE [None]
  - SUICIDE ATTEMPT [None]
  - DRUG ADMINISTRATION ERROR [None]
